FAERS Safety Report 5766356-2 (Version None)
Quarter: 2008Q2

REPORT INFORMATION
  Report Type: 
  Country: None (occurrence: None)
  Receive Date: 20080611
  Receipt Date: 20080602
  Transmission Date: 20081010
  Serious: Yes (Life-Threatening)
  Sender: FDA-Public Use
  Company Number: FR-GENENTECH-262343

PATIENT
  Age: 65 Year
  Sex: Female

DRUGS (5)
  1. MABTHERA [Suspect]
     Indication: B-CELL LYMPHOMA
     Dosage: 800 MG, UNKNOWN
     Route: 042
     Dates: start: 20061001
  2. CHLORAMBUCIL [Suspect]
     Indication: B-CELL LYMPHOMA
     Route: 048
     Dates: start: 19850101
  3. ADRIBLASTINE [Suspect]
     Indication: B-CELL LYMPHOMA
     Route: 042
     Dates: start: 19980601
  4. CYCLOPHOSPHAMIDE [Suspect]
     Indication: B-CELL LYMPHOMA
     Route: 048
     Dates: start: 19980601
  5. FLUDARABINE PHOSPHATE [Suspect]
     Indication: B-CELL LYMPHOMA
     Dates: start: 19980601

REACTIONS (1)
  - ACUTE MYELOID LEUKAEMIA [None]
